FAERS Safety Report 10723965 (Version 1)
Quarter: 2015Q1

REPORT INFORMATION
  Report Type: Spontaneous
  Country: US (occurrence: None)
  Receive Date: 20150116
  Receipt Date: 20150116
  Transmission Date: 20150721
  Serious: No
  Sender: FDA-Public Use
  Company Number: None

PATIENT
  Age: 68 Year
  Sex: Female
  Weight: 63.5 kg

DRUGS (2)
  1. AMOX TR-K CLV 875-125 MG TAB DR. REDDY^S LAB [Suspect]
     Active Substance: AMOXICILLIN\CLAVULANATE POTASSIUM
     Indication: SINUSITIS
     Dosage: 1 TABLET EVERY 12 HOURS
     Route: 048
     Dates: start: 20150102, end: 20150112
  2. AMOX TR-K CLV 875-125 MG TAB DR. REDDY^S LAB [Suspect]
     Active Substance: AMOXICILLIN\CLAVULANATE POTASSIUM
     Indication: MIDDLE EAR EFFUSION
     Dosage: 1 TABLET EVERY 12 HOURS
     Route: 048
     Dates: start: 20150102, end: 20150112

REACTIONS (4)
  - Rash [None]
  - Urticaria [None]
  - Angioedema [None]
  - Pruritus [None]

NARRATIVE: CASE EVENT DATE: 20150112
